FAERS Safety Report 10543154 (Version 1)
Quarter: 2014Q4

REPORT INFORMATION
  Report Type: Spontaneous
  Country: US (occurrence: None)
  Receive Date: 20141023
  Receipt Date: 20141023
  Transmission Date: 20150529
  Serious: Yes (Hospitalization)
  Sender: FDA-Public Use
  Company Number: 2014STPI000566

PATIENT
  Age: 29 Year
  Sex: Male
  Weight: 78.4 kg

DRUGS (7)
  1. CYTARABINE (CYTARABINE) [Suspect]
     Active Substance: CYTARABINE
     Indication: ACUTE LYMPHOCYTIC LEUKAEMIA
     Route: 042
     Dates: start: 20140807
  2. METHOTREXATE SODIUM (METHOTREXATE SODIUM) [Suspect]
     Active Substance: METHOTREXATE SODIUM
     Indication: ACUTE LYMPHOCYTIC LEUKAEMIA
     Dosage: 13 MG, X1, INTRATHECAL
     Route: 037
     Dates: start: 20140807
  3. PREDNISONE (PREDNISONE) [Suspect]
     Active Substance: PREDNISONE
     Indication: ACUTE LYMPHOCYTIC LEUKAEMIA
     Route: 048
     Dates: start: 201408, end: 201408
  4. VINCRISTINE SULFATE (VINCRISTINE SULFATE) [Suspect]
     Active Substance: VINCRISTINE SULFATE
     Indication: ACUTE LYMPHOCYTIC LEUKAEMIA
     Route: 042
     Dates: start: 20140807
  5. ONCASPAR [Suspect]
     Active Substance: PEGASPARGASE
     Indication: ACUTE LYMPHOCYTIC LEUKAEMIA
     Dosage: 4000 IU, X1, INTRAVENOUS
     Route: 042
     Dates: start: 201408, end: 201408
  6. CYCLOPHOSPHAMIDE. [Suspect]
     Active Substance: CYCLOPHOSPHAMIDE
     Indication: ACUTE LYMPHOCYTIC LEUKAEMIA
     Route: 042
     Dates: start: 20140807
  7. MERCAPTOPURINE (MERCAPTOPURINE) [Suspect]
     Active Substance: MERCAPTOPURINE
     Indication: ACUTE LYMPHOCYTIC LEUKAEMIA
     Route: 048
     Dates: start: 20140807

REACTIONS (3)
  - Human rhinovirus test positive [None]
  - Febrile neutropenia [None]
  - Blood lactic acid increased [None]

NARRATIVE: CASE EVENT DATE: 20141012
